FAERS Safety Report 5301693-7 (Version None)
Quarter: 2007Q1

REPORT INFORMATION
  Report Type: 
  Country: None (occurrence: None)
  Receive Date: 20070208
  Receipt Date: 20061017
  Transmission Date: 20070707
  Serious: Yes (Other)
  Sender: FDA-Public Use
  Company Number: PROG00206003360

PATIENT
  Age: 57 Year
  Sex: Female

DRUGS (7)
  1. PROMETRIUM [Suspect]
     Indication: HORMONE REPLACEMENT THERAPY
     Dosage: 200 MILLIGRAM(S) QD ORAL DAILY DOSE: 200 MILLIGRAM(S) 12 DAYS PER MONTH
     Route: 048
     Dates: start: 20060928, end: 20060929
  2. SYNTHROID [Concomitant]
  3. CAPTOPRIL [Concomitant]
  4. ACTOS [Concomitant]
  5. FORTAMET (METFORMIN) [Concomitant]
  6. SINGULAIR [Concomitant]
  7. LIPITOR [Concomitant]

REACTIONS (4)
  - DIZZINESS [None]
  - DYSARTHRIA [None]
  - LETHARGY [None]
  - TRANSIENT ISCHAEMIC ATTACK [None]
